FAERS Safety Report 7097319-5 (Version None)
Quarter: 2010Q4

REPORT INFORMATION
  Report Type: 
  Country: None (occurrence: None)
  Receive Date: 20101103
  Receipt Date: 20101019
  Transmission Date: 20110411
  Serious: Yes (Other)
  Sender: FDA-Public Use
  Company Number: 020656

PATIENT
  Sex: Male
  Weight: 68.5 kg

DRUGS (8)
  1. LEVETIRACETAM [Suspect]
     Indication: PARTIAL SEIZURES
     Dosage: (3000 MG, 750 MG (2 TABLETS) AM AND 750 MG (2 TAVLETS) PM ORAL)
     Route: 048
     Dates: start: 20091201
  2. TAMSULOSINE HCL A [Concomitant]
  3. DUTASTERIDE [Concomitant]
  4. METOPROLOL [Concomitant]
  5. L-THYROXINE /00068001/ [Concomitant]
  6. SIMVASTATIN [Concomitant]
  7. ASPIRIN [Concomitant]
  8. ZANTAC /00550802/ [Concomitant]

REACTIONS (2)
  - COORDINATION ABNORMAL [None]
  - DYSSTASIA [None]
